FAERS Safety Report 23438976 (Version 1)
Quarter: 2024Q1

REPORT INFORMATION
  Report Type: Spontaneous
  Country: US (occurrence: US)
  Receive Date: 20240124
  Receipt Date: 20240124
  Transmission Date: 20240410
  Serious: Yes (Hospitalization)
  Sender: FDA-Public Use
  Company Number: US-BRISTOL-MYERS SQUIBB COMPANY-2024-010459

PATIENT
  Age: 80 Year
  Sex: Female
  Weight: 53.98 kg

DRUGS (1)
  1. REVLIMID [Suspect]
     Active Substance: LENALIDOMIDE
     Indication: Plasma cell myeloma
     Route: 048

REACTIONS (3)
  - Diarrhoea [Not Recovered/Not Resolved]
  - Dehydration [Not Recovered/Not Resolved]
  - Overdose [Unknown]
